FAERS Safety Report 9279226 (Version 1)
Quarter: 2013Q2

REPORT INFORMATION
  Report Type: Spontaneous
  Country: US (occurrence: US)
  Receive Date: 20130508
  Receipt Date: 20130508
  Transmission Date: 20140414
  Serious: Yes (Other)
  Sender: FDA-Public Use
  Company Number: CHPA2013US007597

PATIENT
  Age: 67 Year
  Sex: Female

DRUGS (9)
  1. EXCEDRIN EXTRA STRENGTH [Suspect]
     Indication: ARTHRITIS
     Dosage: 2 DF, PRN
     Route: 048
  2. EXCEDRIN EXTRA STRENGTH [Suspect]
     Indication: BACK PAIN
  3. EXCEDRIN EXTRA STRENGTH [Suspect]
     Indication: HEADACHE
  4. EXCEDRIN EXTRA STRENGTH [Suspect]
     Indication: PAIN
  5. EXCEDRIN EXTRA STRENGTH [Suspect]
     Indication: SINUS HEADACHE
  6. EXCEDRIN PM [Suspect]
     Indication: RESTLESSNESS
     Dosage: UNK, UNK
     Route: 048
  7. EXCEDRIN PM [Suspect]
     Indication: ARTHRITIS
  8. EXCEDRIN PM [Suspect]
     Indication: BACK PAIN
  9. EXCEDRIN PM [Suspect]
     Indication: HEADACHE

REACTIONS (8)
  - Lumbar spinal stenosis [Not Recovered/Not Resolved]
  - Intervertebral disc protrusion [Not Recovered/Not Resolved]
  - Hypoaesthesia [Recovering/Resolving]
  - Cataract [Not Recovered/Not Resolved]
  - Visual impairment [Not Recovered/Not Resolved]
  - Arthritis [Not Recovered/Not Resolved]
  - Abdominal discomfort [Unknown]
  - Off label use [Unknown]
